FAERS Safety Report 5680602-5 (Version None)
Quarter: 2008Q1

REPORT INFORMATION
  Report Type: 
  Country: None (occurrence: None)
  Receive Date: 20080326
  Receipt Date: 20080317
  Transmission Date: 20080703
  Serious: Yes (Hospitalization, Other)
  Sender: FDA-Public Use
  Company Number: CL-ABBOTT-08P-034-0442357-00

PATIENT
  Sex: Female
  Weight: 47.6 kg

DRUGS (4)
  1. KALETRA [Suspect]
     Indication: HIV INFECTION
     Route: 048
     Dates: start: 20071201
  2. KALETRA [Suspect]
     Indication: HIV INFECTION
     Dates: start: 20070115, end: 20071201
  3. DIDANOSINE [Concomitant]
     Indication: HIV INFECTION
     Route: 048
     Dates: start: 20070115
  4. ABACAVIR [Concomitant]
     Indication: HIV INFECTION
     Route: 048
     Dates: start: 20070115

REACTIONS (5)
  - CYTOMEGALOVIRUS TEST [None]
  - LYMPHADENOPATHY [None]
  - ODYNOPHAGIA [None]
  - OESOPHAGITIS [None]
  - PHARYNGEAL ULCERATION [None]
